FAERS Safety Report 5935592-4 (Version None)
Quarter: 2008Q4

REPORT INFORMATION
  Report Type: 
  Country: None (occurrence: None)
  Receive Date: 20081030
  Receipt Date: 20081027
  Transmission Date: 20090506
  Serious: Yes (Other)
  Sender: FDA-Public Use
  Company Number: B0540500A

PATIENT
  Age: 39 Year
  Sex: Female

DRUGS (2)
  1. VALTREX [Suspect]
     Indication: HERPES ZOSTER
     Dosage: 500MG THREE TIMES PER DAY
     Route: 048
     Dates: start: 20080920, end: 20080925
  2. VIBRAMYCIN [Suspect]
     Indication: DRUG USE FOR UNKNOWN INDICATION
     Route: 065
     Dates: start: 20080916, end: 20080920

REACTIONS (2)
  - HYPOCHROMASIA [None]
  - LEUKOPENIA [None]
